FAERS Safety Report 21027725 (Version 1)
Quarter: 2022Q2

REPORT INFORMATION
  Report Type: Spontaneous
  Country: US (occurrence: None)
  Receive Date: 20220630
  Receipt Date: 20220630
  Transmission Date: 20220721
  Serious: Yes (Hospitalization)
  Sender: FDA-Public Use
  Company Number: None

PATIENT
  Age: 79 Year
  Sex: Male
  Weight: 65.2 kg

DRUGS (2)
  1. CARBOPLATIN [Suspect]
     Active Substance: CARBOPLATIN
     Dates: end: 20220118
  2. TAXOL [Concomitant]
     Active Substance: PACLITAXEL
     Dates: end: 20220118

REACTIONS (2)
  - Decreased appetite [None]
  - Pneumonia [None]

NARRATIVE: CASE EVENT DATE: 20220504
